FAERS Safety Report 7239166-7 (Version None)
Quarter: 2011Q1

REPORT INFORMATION
  Report Type: 
  Country: None (occurrence: None)
  Receive Date: 20110121
  Receipt Date: 20010420
  Transmission Date: 20110831
  Serious: Yes (Other)
  Sender: FDA-Public Use
  Company Number: PHHY2001IT02266

PATIENT
  Age: 53 Year
  Sex: Male

DRUGS (5)
  1. METHYLPREDNISOLONE ACETATE [Concomitant]
     Indication: GRAFT VERSUS HOST DISEASE
  2. PREDONINE [Concomitant]
     Dosage: 0.5 MG/KG/DAY
  3. METHOTREXAT [Concomitant]
     Indication: GRAFT VERSUS HOST DISEASE
  4. PREDONINE [Concomitant]
     Indication: GLOMERULONEPHRITIS MEMBRANOUS
     Dosage: 1 MG/KG/DAY
  5. CYCLOSPORINE [Suspect]
     Indication: GRAFT VERSUS HOST DISEASE

REACTIONS (6)
  - CHRONIC GRAFT VERSUS HOST DISEASE [None]
  - GLOMERULONEPHRITIS MEMBRANOUS [None]
  - RASH PAPULAR [None]
  - NEPHROTIC SYNDROME [None]
  - ACUTE GRAFT VERSUS HOST DISEASE [None]
  - SICCA SYNDROME [None]
